FAERS Safety Report 7054599-X (Version None)
Quarter: 2010Q4

REPORT INFORMATION
  Report Type: 
  Country: None (occurrence: None)
  Receive Date: 20101015
  Receipt Date: 20100929
  Transmission Date: 20110411
  Serious: Yes (Hospitalization, Other)
  Sender: FDA-Public Use
  Company Number: ACO_02458_2010

PATIENT
  Sex: Female

DRUGS (6)
  1. AMPYRA [Suspect]
     Indication: GAIT DISTURBANCE
     Dosage: (10 MG BID ORAL)
     Route: 048
     Dates: start: 20100728, end: 20100901
  2. AMPYRA [Suspect]
     Indication: MULTIPLE SCLEROSIS
     Dosage: (10 MG BID ORAL)
     Route: 048
     Dates: start: 20100728, end: 20100901
  3. CITRUCEL [Concomitant]
  4. FISH OIL [Concomitant]
  5. AVONEX [Concomitant]
  6. ALBUTEROL [Concomitant]

REACTIONS (8)
  - CARDIAC FAILURE CONGESTIVE [None]
  - CONVULSION [None]
  - ENCEPHALOPATHY [None]
  - LACTIC ACIDOSIS [None]
  - PULMONARY OEDEMA [None]
  - RESPIRATORY FAILURE [None]
  - URINARY TRACT INFECTION [None]
  - VIITH NERVE PARALYSIS [None]
